FAERS Safety Report 9695219 (Version 1)
Quarter: 2013Q4

REPORT INFORMATION
  Report Type: Spontaneous
  Country: US (occurrence: US)
  Receive Date: 20131119
  Receipt Date: 20131119
  Transmission Date: 20140711
  Serious: Yes (Hospitalization)
  Sender: FDA-Public Use
  Company Number: US-BAYER-2013-139463

PATIENT
  Age: 41 Year
  Sex: Female
  Weight: 68.03 kg

DRUGS (3)
  1. YAZ [Suspect]
     Route: 048
  2. VITAMIN D [Concomitant]
  3. LORAZEPAM [Concomitant]
     Indication: ANXIETY
     Dosage: 400 IU, DAILY

REACTIONS (1)
  - Deep vein thrombosis [None]
